FAERS Safety Report 7501949-3 (Version None)
Quarter: 2011Q2

REPORT INFORMATION
  Report Type: 
  Country: None (occurrence: None)
  Receive Date: 20110525
  Receipt Date: 20110520
  Transmission Date: 20111010
  Serious: No
  Sender: FDA-Public Use
  Company Number: US-PFIZER INC-2011111055

PATIENT
  Sex: Male
  Weight: 61.224 kg

DRUGS (2)
  1. LORTAB [Concomitant]
     Indication: BACK PAIN
     Dosage: UNK
     Route: 048
  2. CHANTIX [Suspect]
     Indication: SMOKING CESSATION THERAPY
     Dosage: 1 MG, UNK
     Route: 048
     Dates: start: 20110517, end: 20110519

REACTIONS (2)
  - DEPRESSED MOOD [None]
  - ABDOMINAL PAIN UPPER [None]
